FAERS Safety Report 18099498 (Version 6)
Quarter: 2020Q4

REPORT INFORMATION
  Report Type: Spontaneous
  Country: FR (occurrence: FR)
  Receive Date: 20200731
  Receipt Date: 20201020
  Transmission Date: 20210113
  Serious: Yes (Hospitalization)
  Sender: FDA-Public Use
  Company Number: FR-MYLANLABS-2020M1067614

PATIENT
  Age: 81 Year
  Sex: Female
  Weight: 56 kg

DRUGS (25)
  1. DEXAMETHASONE MYLAN [Suspect]
     Active Substance: DEXAMETHASONE
     Indication: PROPHYLAXIS OF NAUSEA AND VOMITING
  2. PREGABALIN MYLAN [Suspect]
     Active Substance: PREGABALIN
     Indication: PRODUCT USED FOR UNKNOWN INDICATION
     Dosage: 25 MILLIGRAM, QD
     Dates: start: 20200414, end: 20200420
  3. PREGABALIN MYLAN [Suspect]
     Active Substance: PREGABALIN
     Dosage: 100 MILLIGRAM, QD
     Dates: start: 20200420, end: 20200628
  4. DOLIPRANE [Concomitant]
     Active Substance: ACETAMINOPHEN
     Indication: PAIN
  5. ARIXTRA [Concomitant]
     Active Substance: FONDAPARINUX SODIUM
     Dosage: 7.5 MILLIGRAM, QD
  6. MICROLAX                           /00285401/ [Concomitant]
     Indication: CONSTIPATION
     Dosage: UNK UNK, PRN
  7. LANSOPRAZOLE. [Concomitant]
     Active Substance: LANSOPRAZOLE
     Dosage: 60 MILLIGRAM, BID(30 MILLIGRAM, BID )
  8. PM01183 [Suspect]
     Active Substance: LURBINECTEDIN
     Indication: SMALL CELL LUNG CANCER
     Dosage: 4 MILLIGRAM, CYCLE
     Route: 041
     Dates: start: 20200422, end: 20200624
  9. PREDNISONE ARROW [Suspect]
     Active Substance: PREDNISONE
     Indication: PRODUCT USED FOR UNKNOWN INDICATION
     Dosage: 40 MILLIGRAM, QD
     Route: 048
     Dates: start: 20200418, end: 20200423
  10. APROVEL [Concomitant]
     Active Substance: IRBESARTAN
     Dosage: 150 MILLIGRAM, QD
  11. MIANSERINE                         /00390601/ [Concomitant]
     Active Substance: MIANSERIN
     Dosage: 30 MILLIGRAM, QD
  12. MOVICOL [Concomitant]
     Active Substance: POLYETHYLENE GLYCOL 3350\POTASSIUM CHLORIDE\SODIUM BICARBONATE\SODIUM CHLORIDE
     Dosage: 2 DOSAGE FORM, PRN
  13. PM01183 [Suspect]
     Active Substance: LURBINECTEDIN
     Indication: BRONCHIAL CARCINOMA
     Dosage: 4 MILLIGRAM/CYCLE
     Route: 042
     Dates: start: 20200422, end: 20200422
  14. XANAX [Concomitant]
     Active Substance: ALPRAZOLAM
     Dosage: 0.25 MILLIGRAM, Q8H(0.25 MILLIGRAM, TID)
  15. VERSATIS [Concomitant]
     Active Substance: LIDOCAINE
     Dosage: 2 DOSAGE FORM, BID(0.5%, 1 DOSAGE FORM (PLASTER), BID)
  16. LANSOPRAZOLE. [Concomitant]
     Active Substance: LANSOPRAZOLE
     Dosage: 30 MILLIGRAM, BID
  17. PRIMPERAN [Concomitant]
     Active Substance: METOCLOPRAMIDE HYDROCHLORIDE
     Dosage: 10 MILLIGRAM, Q8H(10 MILLIGRAM, TID (IF NEEDED)10 MILLIGRAM, TID (IF NEEDED))
  18. SKENAN [Suspect]
     Active Substance: MORPHINE SULFATE
     Dosage: 60 MILLIGRAM, BID(40 MILLIGRAM, BID )
     Dates: start: 20200428
  19. DOLIPRANE [Concomitant]
     Active Substance: ACETAMINOPHEN
     Indication: PYREXIA
     Dosage: 1000 MILLIGRAM, Q8H
  20. ONDANSETRON ACCORD [Concomitant]
     Active Substance: ONDANSETRON
     Indication: PROPHYLAXIS OF NAUSEA AND VOMITING
     Dosage: 8 MILLIGRAM(8 MILLIGRAM, D1D2D3/CYCLE)
     Route: 042
     Dates: start: 20200422
  21. BISOPROLOL                         /00802602/ [Concomitant]
     Active Substance: BISOPROLOL
     Dosage: 125 MILLIGRAM, QD
  22. DEXAMETHASONE MYLAN [Suspect]
     Active Substance: DEXAMETHASONE
     Indication: CHEMOTHERAPY SIDE EFFECT PROPHYLAXIS
     Dosage: 8 MILLIGRAM, CYCLE
     Route: 042
     Dates: start: 20200422, end: 20200603
  23. SKENAN [Suspect]
     Active Substance: MORPHINE SULFATE
     Indication: PRODUCT USED FOR UNKNOWN INDICATION
     Dosage: 120 MILLIGRAM, BID(60 MILLIGRAM, BID  )
     Dates: start: 20200428
  24. ACTISKENAN [Suspect]
     Active Substance: MORPHINE SULFATE
     Indication: PAIN
     Dosage: 10 MILLIGRAM, Q4H
  25. METFORMINE                         /00082701/ [Concomitant]
     Active Substance: METFORMIN HYDROCHLORIDE
     Dosage: 1700 MILLIGRAM, BID(850 MILLIGRAM, BID)

REACTIONS (3)
  - Disorientation [Recovering/Resolving]
  - Confusional state [Recovering/Resolving]
  - Persecutory delusion [Recovering/Resolving]

NARRATIVE: CASE EVENT DATE: 20200425
